FAERS Safety Report 13671091 (Version 1)
Quarter: 2017Q2

REPORT INFORMATION
  Report Type: Spontaneous
  Country: US (occurrence: US)
  Receive Date: 20170620
  Receipt Date: 20170620
  Transmission Date: 20170830
  Serious: No
  Sender: FDA-Public Use
  Company Number: US-ROCHE-1361310

PATIENT
  Sex: Female

DRUGS (11)
  1. XANAX [Concomitant]
     Active Substance: ALPRAZOLAM
  2. XELODA [Suspect]
     Active Substance: CAPECITABINE
     Dosage: 7 DAY ON AND 7 DAY OFF
     Route: 048
     Dates: start: 20140311
  3. ZOCOR [Concomitant]
     Active Substance: SIMVASTATIN
  4. GABAPENTIN. [Concomitant]
     Active Substance: GABAPENTIN
  5. CYCLOBENZAPRINE HCL [Concomitant]
     Active Substance: CYCLOBENZAPRINE HYDROCHLORIDE
  6. DIOVAN [Concomitant]
     Active Substance: VALSARTAN
  7. ASPIRIN. [Concomitant]
     Active Substance: ASPIRIN
  8. BYSTOLIC [Concomitant]
     Active Substance: NEBIVOLOL HYDROCHLORIDE
  9. FOLIC ACID. [Concomitant]
     Active Substance: FOLIC ACID
  10. XELODA [Suspect]
     Active Substance: CAPECITABINE
     Indication: BREAST CANCER
     Route: 048
     Dates: start: 20130906
  11. XELODA [Suspect]
     Active Substance: CAPECITABINE
     Route: 048
     Dates: start: 20130907

REACTIONS (4)
  - Pruritus [Unknown]
  - Erythema [Unknown]
  - Erythema [Not Recovered/Not Resolved]
  - Rash [Unknown]
